FAERS Safety Report 12415926 (Version 2)
Quarter: 2016Q2

REPORT INFORMATION
  Report Type: Spontaneous
  Country: US (occurrence: US)
  Receive Date: 20160530
  Receipt Date: 20160531
  Transmission Date: 20160815
  Serious: Yes (Other)
  Sender: FDA-Public Use
  Company Number: US-PFIZER INC-2016278146

PATIENT
  Age: 68 Year
  Sex: Female

DRUGS (2)
  1. XELJANZ [Suspect]
     Active Substance: TOFACITINIB CITRATE
     Indication: RHEUMATOID ARTHRITIS
     Dosage: 5 MG, 2X/DAY
     Route: 048
     Dates: start: 201512, end: 201604
  2. DICLOFENAC [Concomitant]
     Active Substance: DICLOFENAC
     Indication: ARTHRITIS
     Dosage: 75 MG, 2X/DAY
     Route: 048

REACTIONS (6)
  - Abasia [Recovering/Resolving]
  - Arthralgia [Unknown]
  - Skin discolouration [Unknown]
  - Erythema [Recovering/Resolving]
  - Inflammation [Recovering/Resolving]
  - Pyrexia [Recovered/Resolved]

NARRATIVE: CASE EVENT DATE: 201604
